FAERS Safety Report 14392678 (Version 1)
Quarter: 2018Q1

REPORT INFORMATION
  Report Type: Spontaneous
  Country: US (occurrence: US)
  Receive Date: 20180112
  Receipt Date: 20180112
  Transmission Date: 20180509
  Serious: Yes (Other)
  Sender: FDA-Public Use
  Company Number: None

PATIENT
  Age: 54 Year
  Sex: Female
  Weight: 54.9 kg

DRUGS (2)
  1. SEPTICAINE 4% WITH EPINEPHERINE [Suspect]
     Active Substance: ARTICAINE\EPINEPHRINE
     Indication: DENTAL LOCAL ANAESTHESIA
     Dosage: ?          OTHER ROUTE:ORAL INJECTION?
     Route: 004
     Dates: start: 20171204, end: 20171204
  2. LETROZOLE. [Concomitant]
     Active Substance: LETROZOLE

REACTIONS (3)
  - Speech disorder [None]
  - Anaesthetic complication [None]
  - Neuropathy peripheral [None]

NARRATIVE: CASE EVENT DATE: 20171204
